FAERS Safety Report 16198525 (Version 2)
Quarter: 2019Q2

REPORT INFORMATION
  Report Type: Spontaneous
  Country: CN (occurrence: CN)
  Receive Date: 20190415
  Receipt Date: 20190528
  Transmission Date: 20190711
  Serious: Yes (Other)
  Sender: FDA-Public Use
  Company Number: CN-ROCHE-2288661

PATIENT
  Age: 32 Year
  Sex: Male

DRUGS (15)
  1. XELODA [Suspect]
     Active Substance: CAPECITABINE
     Indication: ILEUS
  2. FOLINIC ACID [Suspect]
     Active Substance: LEUCOVORIN
     Indication: COLON CANCER
     Route: 065
     Dates: start: 20170122
  3. FLUOROURACIL. [Suspect]
     Active Substance: FLUOROURACIL
     Indication: ILEUS
     Route: 065
     Dates: start: 20170307
  4. OXALIPLATIN. [Suspect]
     Active Substance: OXALIPLATIN
     Indication: ILEUS
     Route: 065
     Dates: start: 20170307
  5. AVASTIN [Suspect]
     Active Substance: BEVACIZUMAB
     Indication: COLON CANCER
     Route: 065
     Dates: start: 20170122
  6. DEXAMETHASONE. [Concomitant]
     Active Substance: DEXAMETHASONE
     Indication: HYPERSENSITIVITY
     Route: 042
  7. FOLINIC ACID [Suspect]
     Active Substance: LEUCOVORIN
     Indication: ILEUS
     Route: 065
     Dates: start: 20170307
  8. FLUOROURACIL. [Suspect]
     Active Substance: FLUOROURACIL
     Route: 065
     Dates: start: 20170906, end: 20170908
  9. OXALIPLATIN. [Suspect]
     Active Substance: OXALIPLATIN
     Indication: COLON CANCER
     Route: 065
     Dates: start: 20170122
  10. DIPHENHYDRAMINE. [Concomitant]
     Active Substance: DIPHENHYDRAMINE
     Indication: HYPERSENSITIVITY
     Route: 030
  11. CIS-PLATINUM [Concomitant]
     Active Substance: CISPLATIN
     Indication: COLON CANCER
     Route: 065
     Dates: start: 20170906, end: 20170908
  12. CIS-PLATINUM [Concomitant]
     Active Substance: CISPLATIN
     Indication: ILEUS
  13. FLUOROURACIL. [Suspect]
     Active Substance: FLUOROURACIL
     Indication: COLON CANCER
     Route: 065
     Dates: start: 20170122
  14. XELODA [Suspect]
     Active Substance: CAPECITABINE
     Indication: COLON CANCER
     Dosage: DF=PILL
     Route: 048
  15. AVASTIN [Suspect]
     Active Substance: BEVACIZUMAB
     Indication: ILEUS
     Route: 065
     Dates: start: 20170307

REACTIONS (17)
  - Haematochezia [Unknown]
  - Abdominal discomfort [Unknown]
  - Haematotoxicity [Unknown]
  - Pulmonary fibrosis [Unknown]
  - Gastroenteritis [Unknown]
  - Rash [Unknown]
  - Skin reaction [Unknown]
  - Pruritus [Unknown]
  - Cystic lung disease [Unknown]
  - Defaecation disorder [Unknown]
  - Neuropathy peripheral [Unknown]
  - Vomiting [Unknown]
  - Erythema [Unknown]
  - Weight decreased [Unknown]
  - Nausea [Unknown]
  - Asthenia [Unknown]
  - Pleural effusion [Recovered/Resolved]
